FAERS Safety Report 13102865 (Version 2)
Quarter: 2017Q1

REPORT INFORMATION
  Report Type: Report from Study
  Country: US (occurrence: US)
  Receive Date: 20170110
  Receipt Date: 20170126
  Transmission Date: 20170428
  Serious: Yes (Hospitalization)
  Sender: FDA-Public Use
  Company Number: US-ACTELION-A-NJ2016-144844

PATIENT
  Age: 73 Year
  Sex: Male

DRUGS (8)
  1. SILDENAFIL. [Concomitant]
     Active Substance: SILDENAFIL
  2. ELIQUIS [Concomitant]
     Active Substance: APIXABAN
  3. OPSUMIT [Suspect]
     Active Substance: MACITENTAN
     Indication: PULMONARY ARTERIAL HYPERTENSION
     Dosage: 10 MG, QD
     Route: 048
     Dates: start: 20150520
  4. UPTRAVI [Suspect]
     Active Substance: SELEXIPAG
     Indication: PULMONARY ARTERIAL HYPERTENSION
     Dosage: 1600 MCG, BID
     Route: 048
  5. AMLODIPINE [Concomitant]
     Active Substance: AMLODIPINE BESYLATE
  6. UPTRAVI [Suspect]
     Active Substance: SELEXIPAG
     Dosage: UNK
     Route: 048
     Dates: start: 20160907
  7. UPTRAVI [Suspect]
     Active Substance: SELEXIPAG
     Dosage: 1400 MCG, QPM
     Route: 048
  8. UPTRAVI [Suspect]
     Active Substance: SELEXIPAG
     Dosage: 1200 MCG, QAM
     Route: 048

REACTIONS (10)
  - Asthenia [Unknown]
  - Pulmonary oedema [Unknown]
  - Limb discomfort [Unknown]
  - Localised infection [Recovering/Resolving]
  - Dyspnoea [Unknown]
  - Chest pain [Unknown]
  - Pain in extremity [Unknown]
  - Fatigue [Unknown]
  - Therapy non-responder [Unknown]
  - Condition aggravated [Unknown]

NARRATIVE: CASE EVENT DATE: 20161126
